FAERS Safety Report 5809261-5 (Version None)
Quarter: 2008Q3

REPORT INFORMATION
  Report Type: 
  Country: None (occurrence: None)
  Receive Date: 20080714
  Receipt Date: 20080603
  Transmission Date: 20090109
  Serious: Yes (Other)
  Sender: FDA-Public Use
  Company Number: JP-BOEHRINGER INGELHEIM GMBH, GERMANY-2008-BP-10928NB

PATIENT
  Sex: Male
  Weight: 66.7 kg

DRUGS (4)
  1. MICARDIS [Suspect]
     Indication: HYPERTENSION
     Route: 048
  2. NORVASC [Concomitant]
     Indication: HYPERTENSION
     Route: 048
     Dates: start: 20051005
  3. LASIX [Concomitant]
     Indication: HYPERTENSION
     Route: 048
     Dates: start: 20080501
  4. HUMACART 37 (INSULIN HUMAN (GENETICAL RECOMBINATION) [Concomitant]
     Route: 058
     Dates: start: 20070815

REACTIONS (1)
  - RENAL FAILURE CHRONIC [None]
